FAERS Safety Report 8146126-0 (Version None)
Quarter: 2012Q1

REPORT INFORMATION
  Report Type: 
  Country: None (occurrence: None)
  Receive Date: 20120217
  Receipt Date: 20110503
  Transmission Date: 20120608
  Serious: No
  Sender: FDA-Public Use
  Company Number: US-ABBOTT-11P-163-0723087-00

PATIENT
  Sex: Male
  Weight: 83.99 kg

DRUGS (2)
  1. M.V.I. [Concomitant]
     Indication: PRODUCT USED FOR UNKNOWN INDICATION
  2. SIMCOR [Suspect]
     Indication: BLOOD CHOLESTEROL
     Dosage: 500/20MG
     Dates: start: 20110103

REACTIONS (3)
  - SKIN BURNING SENSATION [None]
  - PRURITUS [None]
  - HEADACHE [None]
